APPROVED DRUG PRODUCT: TYGACIL
Active Ingredient: TIGECYCLINE
Strength: 50MG/VIAL
Dosage Form/Route: POWDER;INTRAVENOUS
Application: N021821 | Product #001 | TE Code: AP
Applicant: PF PRISM CV
Approved: Jun 15, 2005 | RLD: Yes | RS: Yes | Type: RX

PATENTS:
Patent 7879828 | Expires: Feb 5, 2029
Patent 9254328 | Expires: Mar 13, 2026
Patent 8975242 | Expires: Oct 24, 2028
Patent 8372995 | Expires: Oct 8, 2030
Patent 9694078 | Expires: Mar 13, 2026
Patent 10588975 | Expires: Mar 13, 2026